FAERS Safety Report 21812695 (Version 1)
Quarter: 2023Q1

REPORT INFORMATION
  Report Type: Spontaneous
  Country: US (occurrence: US)
  Receive Date: 20230103
  Receipt Date: 20230103
  Transmission Date: 20230418
  Serious: Yes (Other)
  Sender: FDA-Public Use
  Company Number: US-PFIZER INC-2018449940

PATIENT
  Age: 51 Year
  Sex: Female

DRUGS (2)
  1. RAPAMUNE [Suspect]
     Active Substance: SIROLIMUS
     Dosage: 3 MG, ALTERNATE DAY (TAKE 3 TABS EVERY OTHER DAY ALTERNATING AND 4 TABS EVERY OTHER DAY)
     Route: 048
  2. RAPAMUNE [Suspect]
     Active Substance: SIROLIMUS
     Dosage: 4 MG, ALTERNATE DAY (TAKE 3 TABS EVERY OTHER DAY ALTERNATING AND 4 TABS EVERY OTHER DAY)
     Route: 048

REACTIONS (2)
  - Blindness [Unknown]
  - Product use issue [Unknown]
